FAERS Safety Report 5771269-6 (Version None)
Quarter: 2008Q2

REPORT INFORMATION
  Report Type: 
  Country: None (occurrence: None)
  Receive Date: 20080612
  Receipt Date: 20080612
  Transmission Date: 20081010
  Serious: Yes (Life-Threatening)
  Sender: FDA-Public Use
  Company Number: None

PATIENT
  Age: 49 Year
  Sex: Female
  Weight: 68.0396 kg

DRUGS (1)
  1. OXCARBAZEPINE [Suspect]
     Indication: CONVULSION
     Dosage: 2700 MG/DAY 1 1/2 -900MG. - 3X PO
     Route: 048
     Dates: start: 20071215, end: 20071216

REACTIONS (4)
  - COGNITIVE DISORDER [None]
  - GRAND MAL CONVULSION [None]
  - INCOHERENT [None]
  - SPEECH DISORDER [None]
